FAERS Safety Report 9979790 (Version 1)
Quarter: 2014Q1

REPORT INFORMATION
  Report Type: Report from Study
  Country: US (occurrence: US)
  Receive Date: 20140307
  Receipt Date: 20140307
  Transmission Date: 20141002
  Serious: No
  Sender: FDA-Public Use
  Company Number: US-ABBVIE-13P-163-1172703-00

PATIENT
  Age: 26 Year
  Sex: Female

DRUGS (6)
  1. HUMIRA [Suspect]
     Indication: CROHN^S DISEASE
     Dates: start: 20130923, end: 20131103
  2. LIALDA [Concomitant]
     Indication: CROHN^S DISEASE
     Dosage: 4 PILLS DAILY
  3. BUDESONIDE [Concomitant]
     Indication: CROHN^S DISEASE
     Dosage: 3 PILLS DAILY
  4. MERCAPTOPURINE [Concomitant]
     Indication: CROHN^S DISEASE
  5. CALCIUM CHLORIDE [Concomitant]
     Indication: MINERAL SUPPLEMENTATION
  6. MULTIVITAMIN [Concomitant]
     Indication: VITAMIN SUPPLEMENTATION
     Dosage: DAILY

REACTIONS (1)
  - Pneumonia [Recovering/Resolving]
